FAERS Safety Report 4519201-7 (Version None)
Quarter: 2004Q4

REPORT INFORMATION
  Report Type: 
  Country: None (occurrence: None)
  Receive Date: 20041201
  Receipt Date: 20041115
  Transmission Date: 20050328
  Serious: Yes (Other)
  Sender: FDA-Public Use
  Company Number: 210744

PATIENT
  Age: 68 Year
  Sex: Female
  Weight: 51 kg

DRUGS (4)
  1. HERCEPTIN [Suspect]
     Indication: BREAST CANCER METASTATIC
     Dosage: 2 MG/KG INTRAVENOUS
     Route: 042
     Dates: start: 20040201
  2. VINORELBINE TARTRATE [Suspect]
     Dosage: 25MG/KG INTRAVENOUS
     Route: 042
     Dates: start: 20040201
  3. DEXAMETHASONE [Concomitant]
  4. KYTRIL [Concomitant]

REACTIONS (1)
  - INTERSTITIAL LUNG DISEASE [None]
